FAERS Safety Report 5126402-6 (Version None)
Quarter: 2006Q3

REPORT INFORMATION
  Report Type: 
  Country: None (occurrence: None)
  Receive Date: 20060830
  Receipt Date: 20060125
  Transmission Date: 20061208
  Serious: Yes (Hospitalization)
  Sender: FDA-Public Use
  Company Number: 200512047BWH

PATIENT
  Sex: Male

DRUGS (2)
  1. TRASYLOL [Suspect]
     Indication: COX-MAZE PROCEDURE
     Dates: start: 20050801
  2. TRASYLOL [Suspect]
     Indication: MITRAL VALVE REPAIR
     Dates: start: 20050801

REACTIONS (1)
  - RENAL DISORDER [None]
